FAERS Safety Report 8215331-7 (Version None)
Quarter: 2012Q1

REPORT INFORMATION
  Report Type: 
  Country: None (occurrence: None)
  Receive Date: 20120229
  Receipt Date: 20110105
  Transmission Date: 20120608
  Serious: Yes (Other)
  Sender: FDA-Public Use
  Company Number: PHHY2011US01011

PATIENT
  Sex: Male

DRUGS (2)
  1. CEPHALEXIN [Concomitant]
  2. NEORAL [Suspect]
     Dosage: 25 MG, FOUR TIMES A DAY
     Dates: start: 19950101

REACTIONS (1)
  - SKIN CANCER [None]
